FAERS Safety Report 6992272-4 (Version None)
Quarter: 2010Q3

REPORT INFORMATION
  Report Type: 
  Country: None (occurrence: None)
  Receive Date: 20100914
  Receipt Date: 20100914
  Transmission Date: 20110219
  Serious: Yes (Hospitalization, Other)
  Sender: FDA-Public Use
  Company Number: None

PATIENT
  Sex: Female
  Weight: 87 kg

DRUGS (9)
  1. LENALIDOMIDE [Suspect]
     Indication: HODGKIN'S DISEASE
     Dosage: 20MG QDAY PO, 21/28 DAYS
     Route: 048
     Dates: start: 20070104
  2. BACTRIM [Concomitant]
  3. ASPIRIN [Concomitant]
  4. SIMVASTATIN [Concomitant]
  5. RESTORIL [Concomitant]
  6. METOPROLOL [Concomitant]
  7. SYNTHROID [Concomitant]
  8. TRAZODONE HCL [Concomitant]
  9. PAXIL [Concomitant]

REACTIONS (4)
  - ANXIETY [None]
  - CORONARY ARTERY OCCLUSION [None]
  - MYOCARDIAL ISCHAEMIA [None]
  - STRESS [None]
